FAERS Safety Report 7817489-8 (Version None)
Quarter: 2011Q4

REPORT INFORMATION
  Report Type: 
  Country: None (occurrence: None)
  Receive Date: 20111017
  Receipt Date: 20111010
  Transmission Date: 20120403
  Serious: Yes (Hospitalization)
  Sender: FDA-Public Use
  Company Number: DE-AMGEN-DEUCT2011038960

PATIENT
  Age: 70 Year
  Sex: Female

DRUGS (12)
  1. INDACATEROL [Concomitant]
     Dosage: UNK UNK, BID
  2. ALBUTEROL SULFATE [Concomitant]
     Dosage: UNK UNK, QD
  3. DEKRISTOL [Concomitant]
     Dosage: UNK UNK, Q2WK
  4. NEURO-RATIOPHARM N [Concomitant]
     Route: 048
  5. CINACALCET HYDROCHLORIDE [Suspect]
     Indication: HYPERPARATHYROIDISM PRIMARY
     Dosage: 30 G, UNK
     Route: 048
     Dates: start: 20100622, end: 20100704
  6. MIRTAZAPINE [Concomitant]
     Dosage: 30 MG, UNK
  7. DILTIAZEM HCL [Concomitant]
     Dosage: 90 MUG, UNK
     Route: 048
  8. ZOLEDRONOC ACID [Concomitant]
     Dosage: 5 MG, Q12MO
     Route: 042
     Dates: start: 20100531
  9. PROLIA [Concomitant]
  10. SPIRIVA [Concomitant]
     Dosage: UNK UNK, BID
  11. OXAZEPAM [Concomitant]
     Dosage: 10 MG, PRN
     Route: 048
  12. LEUCOVORIN CALCIUM [Concomitant]
     Route: 048

REACTIONS (1)
  - CIRCULATORY COLLAPSE [None]
